FAERS Safety Report 7700383-0 (Version None)
Quarter: 2011Q3

REPORT INFORMATION
  Report Type: 
  Country: None (occurrence: None)
  Receive Date: 20110822
  Receipt Date: 20110817
  Transmission Date: 20111222
  Serious: Yes (Hospitalization)
  Sender: FDA-Public Use
  Company Number: US-BRISTOL-MYERS SQUIBB COMPANY-15979784

PATIENT
  Age: 56 Year
  Sex: Female
  Weight: 184 kg

DRUGS (10)
  1. CALCIUM + VITAMIN D [Concomitant]
     Indication: METASTASES TO BONE
     Route: 048
     Dates: start: 20100520
  2. PROCHLORPERAZINE [Concomitant]
     Indication: VOMITING
     Dosage: TABLET
     Route: 048
  3. OXYCODONE HCL [Concomitant]
     Indication: PAIN
     Dosage: CAPS
     Route: 048
     Dates: start: 20100620
  4. IXABEPILONE [Suspect]
     Indication: BREAST CANCER
     Dosage: D1,D8 LAST DOSE:12AUG11 C17D8
     Route: 042
     Dates: start: 20100709
  5. CARBOPLATIN [Suspect]
     Indication: BREAST CANCER
     Dosage: D1,D8 LAST DOSE:12AUG11 C17D8
     Route: 042
     Dates: start: 20100709
  6. PROCHLORPERAZINE [Concomitant]
     Indication: NAUSEA
     Dosage: TABLET
     Route: 048
  7. KEFLEX [Concomitant]
     Dosage: CAPSULE
     Route: 048
  8. ARANESP [Concomitant]
     Indication: ANAEMIA
     Route: 058
     Dates: start: 20100816
  9. PERCOCET [Concomitant]
     Dosage: 1DF:5/325 UNITS NOS
     Route: 048
  10. MAGNESIUM OXIDE [Concomitant]
     Indication: HYPOMAGNESAEMIA
     Dosage: TABLET
     Route: 048
     Dates: start: 20101230

REACTIONS (3)
  - DYSPNOEA [None]
  - CHEST DISCOMFORT [None]
  - DIZZINESS [None]
